FAERS Safety Report 9769540 (Version 3)
Quarter: 2014Q1

REPORT INFORMATION
  Report Type: Spontaneous
  Country: US (occurrence: US)
  Receive Date: 20131218
  Receipt Date: 20140324
  Transmission Date: 20141002
  Serious: No
  Sender: FDA-Public Use
  Company Number: US-SHIONOGI, INC-2013000305

PATIENT
  Age: 54 Year
  Sex: Female

DRUGS (8)
  1. OSPHENA [Suspect]
     Indication: VULVOVAGINAL DISCOMFORT
     Dosage: 60 MG, QD
     Route: 048
     Dates: start: 20130930
  2. OSPHENA [Suspect]
     Indication: OFF LABEL USE
  3. OSPHENA [Suspect]
     Indication: BLADDER DISCOMFORT
  4. OSPHENA [Suspect]
     Indication: BLADDER SPASM
  5. OSPHENA [Suspect]
     Indication: MICTURITION URGENCY
  6. ELMIRON [Concomitant]
     Indication: BLADDER DISCOMFORT
     Dosage: UNK
     Route: 065
  7. ULTRAM [Concomitant]
     Indication: PRODUCT USED FOR UNKNOWN INDICATION
     Dosage: UNK
     Route: 065
  8. VAGIFEM [Concomitant]
     Indication: PRODUCT USED FOR UNKNOWN INDICATION
     Dosage: UNK
     Route: 065

REACTIONS (8)
  - Headache [Recovered/Resolved]
  - Off label use [Unknown]
  - Therapeutic response unexpected [Unknown]
  - Fatigue [Unknown]
  - Mood altered [Unknown]
  - Burning sensation [Unknown]
  - Cystitis [Unknown]
  - Poor quality sleep [Unknown]
